FAERS Safety Report 12600253 (Version 2)
Quarter: 2016Q3

REPORT INFORMATION
  Report Type: Spontaneous
  Country: IT (occurrence: IT)
  Receive Date: 20160727
  Receipt Date: 20160916
  Transmission Date: 20161109
  Serious: Yes (Hospitalization, Other)
  Sender: FDA-Public Use
  Company Number: IT-BRISTOL-MYERS SQUIBB COMPANY-BMS-2016-060284

PATIENT
  Weight: 92 kg

DRUGS (1)
  1. IPILIMUMAB [Suspect]
     Active Substance: IPILIMUMAB
     Indication: METASTATIC MALIGNANT MELANOMA
     Dosage: 276 MG, UNK
     Route: 065

REACTIONS (4)
  - Intestinal obstruction [Unknown]
  - Hypophysitis [Unknown]
  - Ileus paralytic [Unknown]
  - Megacolon [Recovering/Resolving]

NARRATIVE: CASE EVENT DATE: 20160719
